FAERS Safety Report 9254875 (Version 1)
Quarter: 2013Q2

REPORT INFORMATION
  Report Type: Spontaneous
  Country: US (occurrence: None)
  Receive Date: 20130423
  Receipt Date: 20130423
  Transmission Date: 20140414
  Serious: Yes (Death)
  Sender: FDA-Public Use
  Company Number: None

PATIENT
  Age: 43 Year
  Sex: Male

DRUGS (1)
  1. ZALTRAP [Suspect]
     Dosage: INFUSE (4MG/KG) 300MG IV OVER 1HR; EVERY 2 WEEKS; IV
     Route: 042

REACTIONS (1)
  - Death [None]
